FAERS Safety Report 21076588 (Version 21)
Quarter: 2023Q1

REPORT INFORMATION
  Report Type: Report from Study
  Country: ES (occurrence: None)
  Receive Date: 20220713
  Receipt Date: 20230124
  Transmission Date: 20230417
  Serious: Yes (Hospitalization)
  Sender: FDA-Public Use
  Company Number: ES-Eisai Medical Research-EC-2022-118881

PATIENT
  Age: 76 Year
  Sex: Male
  Weight: 77.6 kg

DRUGS (10)
  1. LENVATINIB [Suspect]
     Active Substance: LENVATINIB
     Indication: Clear cell renal cell carcinoma
     Route: 048
     Dates: start: 20220617, end: 20220703
  2. PEMBROLIZUMAB [Suspect]
     Active Substance: PEMBROLIZUMAB
     Indication: Clear cell renal cell carcinoma
     Route: 041
     Dates: start: 20220617, end: 20220617
  3. AMLODIPINE [Concomitant]
     Active Substance: AMLODIPINE BESYLATE
     Dates: start: 200911
  4. ASPIRIN [Concomitant]
     Active Substance: ASPIRIN
     Dates: start: 201311
  5. CILOSTAZOL [Concomitant]
     Active Substance: CILOSTAZOL
     Dates: start: 201311
  6. TAMSULOSIN HYDROCHLORIDE [Concomitant]
     Active Substance: TAMSULOSIN HYDROCHLORIDE
     Dates: start: 201806
  7. SIMVASTATIN [Concomitant]
     Active Substance: SIMVASTATIN
     Dates: start: 202201
  8. ZALDIAR [Concomitant]
     Active Substance: ACETAMINOPHEN\TRAMADOL HYDROCHLORIDE
     Dates: start: 20220617
  9. METAMIZOLE MAGNESIUM [Concomitant]
     Active Substance: METAMIZOLE MAGNESIUM
     Dates: start: 20220617
  10. CIPROFLOXACIN [Concomitant]
     Active Substance: CIPROFLOXACIN
     Dates: start: 20220618, end: 20220626

REACTIONS (1)
  - Mucosal inflammation [Not Recovered/Not Resolved]

NARRATIVE: CASE EVENT DATE: 20220704
